FAERS Safety Report 9450808 (Version 2)
Quarter: 2013Q3

REPORT INFORMATION
  Report Type: Spontaneous
  Country: JP (occurrence: JP)
  Receive Date: 20130809
  Receipt Date: 20130829
  Transmission Date: 20140515
  Serious: Yes (Other)
  Sender: FDA-Public Use
  Company Number: JP-GILEAD-2013-0080941

PATIENT
  Age: 35 Year
  Sex: Female

DRUGS (5)
  1. REVATIO [Concomitant]
     Dosage: 20MG THREE TIMES PER DAY
     Route: 048
     Dates: start: 20130419
  2. AMBRISENTAN [Suspect]
     Indication: PULMONARY HYPERTENSION
     Dosage: 10 MG, UNK
     Route: 048
     Dates: start: 20130627, end: 20130712
  3. FLOLAN [Suspect]
     Indication: PULMONARY HYPERTENSION
     Dosage: UNK
     Route: 042
     Dates: start: 20130418
  4. FLOLAN [Suspect]
     Dosage: UNK
     Route: 042
     Dates: start: 20130419
  5. FUROSEMIDE [Suspect]
     Indication: PRODUCT USED FOR UNKNOWN INDICATION
     Dosage: 60 MG, QD
     Route: 048
     Dates: start: 20130501

REACTIONS (3)
  - Renal impairment [Recovering/Resolving]
  - Premature labour [Unknown]
  - Exposure during pregnancy [Unknown]
